FAERS Safety Report 11414885 (Version 4)
Quarter: 2016Q1

REPORT INFORMATION
  Report Type: Spontaneous
  Country: JP (occurrence: JP)
  Receive Date: 20150825
  Receipt Date: 20160105
  Transmission Date: 20160525
  Serious: Yes (Other)
  Sender: FDA-Public Use
  Company Number: JP-009507513-1508JPN009581

PATIENT
  Age: 23 Year
  Sex: Male

DRUGS (5)
  1. SILECE [Concomitant]
     Active Substance: FLUNITRAZEPAM
     Dosage: 1 MG, QD
     Route: 048
  2. NITOROL [Concomitant]
     Active Substance: ISOSORBIDE DINITRATE
     Dosage: DAILY DOSE UNKNOWN
     Route: 065
  3. ROHYPNOL [Concomitant]
     Active Substance: FLUNITRAZEPAM
     Dosage: 2 MG, QD
     Route: 048
  4. BELSOMRA [Suspect]
     Active Substance: SUVOREXANT
     Indication: INSOMNIA
     Dosage: 600 MG, QD
     Route: 048
     Dates: start: 20150813, end: 20150813
  5. BELSOMRA [Suspect]
     Active Substance: SUVOREXANT
     Dosage: 20 MG, QD
     Route: 048
     Dates: start: 20150724

REACTIONS (3)
  - Suicide attempt [Recovering/Resolving]
  - Intentional overdose [Unknown]
  - Somnolence [Recovering/Resolving]

NARRATIVE: CASE EVENT DATE: 20150813
